FAERS Safety Report 5014332-X (Version None)
Quarter: 2006Q2

REPORT INFORMATION
  Report Type: 
  Country: None (occurrence: None)
  Receive Date: 20060414
  Receipt Date: 20051223
  Transmission Date: 20061013
  Serious: No
  Sender: FDA-Public Use
  Company Number: 2005SP004169

PATIENT
  Age: 46 Year
  Sex: Female

DRUGS (4)
  1. LUNESTA [Suspect]
     Indication: INSOMNIA
     Dosage: 2 MG;HS
     Dates: start: 20050901, end: 20051201
  2. PLAQUENIL [Concomitant]
  3. NEXIUM [Concomitant]
  4. BACTRIM [Concomitant]

REACTIONS (1)
  - DYSGEUSIA [None]
